FAERS Safety Report 9201176 (Version 1)
Quarter: 2013Q2

REPORT INFORMATION
  Report Type: Spontaneous
  Country: FR (occurrence: FR)
  Receive Date: 20130401
  Receipt Date: 20130401
  Transmission Date: 20140414
  Serious: Yes (Disabling, Other)
  Sender: FDA-Public Use
  Company Number: PHHY2013FR026932

PATIENT
  Sex: Male

DRUGS (6)
  1. EXELON PATCH [Suspect]
     Indication: DEMENTIA ALZHEIMER^S TYPE
     Dosage: 4.6 MG, QD
     Route: 062
     Dates: start: 20130116, end: 20130213
  2. EXELON PATCH [Suspect]
     Dosage: 9.5 MG, QD
     Route: 062
     Dates: start: 20130213
  3. UVEDOSE [Suspect]
     Indication: VITAMIN D DEFICIENCY
     Dosage: UNK UKN, EVERY 15 DAY
     Route: 048
     Dates: start: 20130109
  4. LOSARTAN + HIDROCLOROTIAZIDA [Concomitant]
     Indication: HYPERTENSION
     Dosage: 100 MG, QD
     Route: 048
  5. LERCANIDIPINE [Concomitant]
     Indication: HYPERTENSION
     Dosage: 10 MG, QD
     Route: 048
  6. CRESTOR [Concomitant]
     Indication: HYPERCHOLESTEROLAEMIA
     Dosage: 5 MG, QD
     Route: 048

REACTIONS (5)
  - Gait disturbance [Recovered/Resolved]
  - Dizziness [Recovered/Resolved]
  - Nausea [Recovered/Resolved]
  - Application site pain [Unknown]
  - Wrong technique in drug usage process [Unknown]
